FAERS Safety Report 4923831-8 (Version None)
Quarter: 2006Q1

REPORT INFORMATION
  Report Type: 
  Country: None (occurrence: None)
  Receive Date: 20060224
  Receipt Date: 20060224
  Transmission Date: 20060701
  Serious: Yes (Hospitalization)
  Sender: FDA-Public Use
  Company Number: None

PATIENT
  Age: 49 Year
  Sex: Female

DRUGS (2)
  1. TORADOL [Suspect]
     Indication: MIGRAINE
     Dosage: 15 MG DOSE EVERY OTHER DAY IM
     Route: 030
     Dates: start: 20051001, end: 20060221
  2. IMITREX [Concomitant]

REACTIONS (1)
  - DUODENAL ULCER PERFORATION [None]
